FAERS Safety Report 16408338 (Version 2)
Quarter: 2019Q2

REPORT INFORMATION
  Report Type: Spontaneous
  Country: AU (occurrence: AU)
  Receive Date: 20190610
  Receipt Date: 20190611
  Transmission Date: 20190711
  Serious: Yes (Death, Other)
  Sender: FDA-Public Use
  Company Number: AU-009507513-1906AUS002565

PATIENT
  Age: 71 Year
  Sex: Male

DRUGS (1)
  1. AVANZA [Suspect]
     Active Substance: MIRTAZAPINE
     Indication: ANXIETY
     Dosage: UNK
     Route: 048
     Dates: start: 20171124, end: 20180108

REACTIONS (1)
  - Suicidal ideation [Fatal]

NARRATIVE: CASE EVENT DATE: 20180108
